FAERS Safety Report 6046328-3 (Version None)
Quarter: 2009Q1

REPORT INFORMATION
  Report Type: 
  Country: None (occurrence: None)
  Receive Date: 20090122
  Receipt Date: 20090113
  Transmission Date: 20090719
  Serious: Yes (Other)
  Sender: FDA-Public Use
  Company Number: US-AMGEN-QUU325840

PATIENT
  Sex: Female
  Weight: 92.6 kg

DRUGS (2)
  1. ENBREL [Suspect]
     Indication: ANKYLOSING SPONDYLITIS
     Route: 058
     Dates: start: 20081215, end: 20081231
  2. PLAQUENIL [Concomitant]
     Dates: start: 20081201

REACTIONS (6)
  - ANXIETY [None]
  - HYPOAESTHESIA [None]
  - MUSCULOSKELETAL CHEST PAIN [None]
  - PARAESTHESIA [None]
  - SENSATION OF HEAVINESS [None]
  - TACHYCARDIA [None]
